FAERS Safety Report 8427357-9 (Version None)
Quarter: 2012Q2

REPORT INFORMATION
  Report Type: 
  Country: None (occurrence: None)
  Receive Date: 20120611
  Receipt Date: 20120606
  Transmission Date: 20120825
  Serious: Yes (Other)
  Sender: FDA-Public Use
  Company Number: US-PFIZER INC-2012104091

PATIENT
  Sex: Male
  Weight: 69.388 kg

DRUGS (16)
  1. CYMBALTA [Suspect]
     Indication: ANXIETY
     Dosage: 60 MG, 1X/DAY
  2. CYMBALTA [Suspect]
     Indication: PAIN
     Dosage: 90 MG, 1X/DAY
  3. OXYCODONE [Concomitant]
     Indication: MIGRAINE
     Dosage: UNK
  4. FLEXERIL [Concomitant]
     Indication: MUSCLE SPASMS
     Dosage: UNK
  5. LIPITOR [Concomitant]
     Indication: BLOOD CHOLESTEROL ABNORMAL
     Dosage: UNK
  6. CYMBALTA [Suspect]
     Indication: DEPRESSION
     Dosage: 30 MG, 1X/DAY
  7. ALPRAZOLAM [Concomitant]
     Indication: ANXIETY
     Dosage: UNK
  8. CYMBALTA [Suspect]
     Dosage: 120 MG, 1X/DAY
  9. HYDROCHLOROTHIAZIDE [Suspect]
     Indication: BLOOD PRESSURE INCREASED
     Dosage: UNK
  10. CLONIDINE [Suspect]
     Indication: BLOOD PRESSURE INCREASED
     Dosage: UNK
  11. SOMA [Concomitant]
     Indication: MUSCLE SPASMS
     Dosage: UNK
  12. CYMBALTA [Suspect]
     Dosage: 30 MG DAILY
     Dates: end: 20120301
  13. ALISKIREN [Suspect]
     Indication: BLOOD PRESSURE INCREASED
     Dosage: UNK
  14. EFFEXOR [Suspect]
     Indication: DRUG WITHDRAWAL MAINTENANCE THERAPY
     Dosage: 75 MG, DAILY
     Dates: start: 20120401
  15. AMLODIPINE/VALSARTAN [Suspect]
     Indication: BLOOD PRESSURE INCREASED
     Dosage: UNK
  16. FIORICET [Concomitant]
     Indication: MIGRAINE
     Dosage: UNK

REACTIONS (12)
  - BLOOD PRESSURE INCREASED [None]
  - MYDRIASIS [None]
  - TEMPOROMANDIBULAR JOINT SYNDROME [None]
  - MIGRAINE [None]
  - BLOOD CORTICOTROPHIN ABNORMAL [None]
  - URINE CALCIUM INCREASED [None]
  - NOREPINEPHRINE INCREASED [None]
  - DECREASED APPETITE [None]
  - BLOOD CORTISOL INCREASED [None]
  - SYNCOPE [None]
  - PSYCHOMOTOR HYPERACTIVITY [None]
  - BLOOD CATECHOLAMINES INCREASED [None]
